FAERS Safety Report 4849301-3 (Version None)
Quarter: 2005Q4

REPORT INFORMATION
  Report Type: 
  Country: None (occurrence: None)
  Receive Date: 20051207
  Receipt Date: 20051117
  Transmission Date: 20060501
  Serious: Yes (Hospitalization)
  Sender: FDA-Public Use
  Company Number: WAES 0508USA02242

PATIENT
  Age: 56 Year
  Sex: Female

DRUGS (5)
  1. DECADRON [Suspect]
     Dosage: 2 MG/Q8H/PO
     Route: 048
     Dates: start: 20050705, end: 20050802
  2. STUDY DRUG (UNSPECIFIED) [Suspect]
     Indication: GLIOBLASTOMA MULTIFORME
     Dates: start: 20050527, end: 20050601
  3. KEPPRA [Concomitant]
  4. PROVIGIL [Concomitant]
  5. ZOLOFT [Concomitant]

REACTIONS (2)
  - CELLULITIS [None]
  - OEDEMA PERIPHERAL [None]
